FAERS Safety Report 5393386-5 (Version None)
Quarter: 2007Q3

REPORT INFORMATION
  Report Type: 
  Country: None (occurrence: None)
  Receive Date: 20070718
  Receipt Date: 20070718
  Transmission Date: 20080115
  Serious: Yes (Life-Threatening, Hospitalization)
  Sender: FDA-Public Use
  Company Number: None

PATIENT
  Sex: Female
  Weight: 92.4 kg

DRUGS (1)
  1. QUININE 260 MG CAPSULES IVAX [Suspect]
     Indication: RESTLESS LEGS SYNDROME
     Dosage: 260MG QHS PO
     Route: 048
     Dates: start: 20060701, end: 20070628

REACTIONS (4)
  - GINGIVAL BLEEDING [None]
  - MOUTH ULCERATION [None]
  - PETECHIAE [None]
  - PLATELET COUNT DECREASED [None]
